FAERS Safety Report 24784279 (Version 2)
Quarter: 2025Q3

REPORT INFORMATION
  Report Type: Report from Study
  Country: US (occurrence: US)
  Receive Date: 20241227
  Receipt Date: 20250803
  Transmission Date: 20251021
  Serious: Yes (Other)
  Sender: ALEXION PHARMACEUTICALS
  Company Number: US-ALXN-202412USA020621US

PATIENT

DRUGS (1)
  1. STRENSIQ [Suspect]
     Active Substance: ASFOTASE ALFA
     Route: 065

REACTIONS (10)
  - Ankylosing spondylitis [Unknown]
  - Haematochezia [Unknown]
  - Thrombosis [Unknown]
  - Diarrhoea [Unknown]
  - Weight increased [Unknown]
  - Eyelid margin crusting [Unknown]
  - Swelling of eyelid [Unknown]
  - Mean cell haemoglobin increased [Unknown]
  - Mean platelet volume decreased [Unknown]
  - Carbon dioxide decreased [Unknown]

NARRATIVE: CASE EVENT DATE: 20240101
